FAERS Safety Report 8085425-8 (Version None)
Quarter: 2012Q1

REPORT INFORMATION
  Report Type: 
  Country: None (occurrence: None)
  Receive Date: 20120128
  Receipt Date: 20110610
  Transmission Date: 20120608
  Serious: No
  Sender: FDA-Public Use
  Company Number: PR-ABBOTT-11P-131-0729980-00

PATIENT
  Sex: Female

DRUGS (5)
  1. PENTASA [Concomitant]
     Indication: CROHN'S DISEASE
     Route: 048
  2. FOLIC ACID [Concomitant]
     Indication: CROHN'S DISEASE
     Route: 048
  3. PRILOSEC [Concomitant]
     Indication: CROHN'S DISEASE
     Route: 048
  4. HUMIRA [Suspect]
     Indication: CROHN'S DISEASE
     Route: 058
     Dates: start: 20110531
  5. PREDNISONE TAB [Concomitant]
     Indication: CROHN'S DISEASE
     Route: 048

REACTIONS (4)
  - HYPOTENSION [None]
  - TACHYCARDIA [None]
  - FATIGUE [None]
  - ASTHENIA [None]
